FAERS Safety Report 9633035 (Version 1)
Quarter: 2013Q4

REPORT INFORMATION
  Report Type: Spontaneous
  Country: US (occurrence: US)
  Receive Date: 20131018
  Receipt Date: 20131018
  Transmission Date: 20140711
  Serious: No
  Sender: FDA-Public Use
  Company Number: US-009507513-1310USA001711

PATIENT
  Age: 23 Year
  Sex: Female
  Weight: 83.9 kg

DRUGS (3)
  1. IMPLANON [Suspect]
     Indication: CONTRACEPTION
     Dosage: 1 ROD UP TO 3 YEARS
     Route: 059
     Dates: start: 20101214
  2. SULFAMETHOXAZOLE [Concomitant]
     Indication: INFECTION
     Dosage: UNK
     Dates: start: 20130917
  3. VITAMIN D (UNSPECIFIED) [Concomitant]

REACTIONS (3)
  - Haemorrhage [Unknown]
  - Muscle spasms [Unknown]
  - Menstruation irregular [Unknown]
